FAERS Safety Report 8179862-0 (Version None)
Quarter: 2012Q1

REPORT INFORMATION
  Report Type: 
  Country: None (occurrence: None)
  Receive Date: 20120302
  Receipt Date: 20120220
  Transmission Date: 20120608
  Serious: Yes (Death)
  Sender: FDA-Public Use
  Company Number: US-JNJFOC-20120210445

PATIENT
  Sex: Female

DRUGS (2)
  1. CONCENTRATED TYLENOL INFANT DROPS [Suspect]
     Indication: PYREXIA
     Route: 065
  2. CONCENTRATED TYLENOL INFANT DROPS [Suspect]
     Route: 065

REACTIONS (2)
  - HEPATIC FAILURE [None]
  - OVERDOSE [None]
